FAERS Safety Report 9602048 (Version 2)
Quarter: 2014Q2

REPORT INFORMATION
  Report Type: Spontaneous
  Country: DK (occurrence: DK)
  Receive Date: 20131007
  Receipt Date: 20140521
  Transmission Date: 20141212
  Serious: Yes (Death)
  Sender: FDA-Public Use
  Company Number: PHHY2013DK110861

PATIENT
  Age: 1 Year
  Sex: Female
  Weight: 9 kg

DRUGS (12)
  1. VOLTAREN [Suspect]
     Indication: PAIN
     Dosage: 12.5 MG, PRN (MAXIMUM 3 TIMES DAILY)
     Route: 054
     Dates: start: 201305
  2. PARACETAMOL [Suspect]
     Dosage: 5 ML, PRN (MAXIMUM 4 TIMES DAILY)
     Route: 048
     Dates: start: 201302
  3. PROLEUKIN [Suspect]
     Indication: DISSEMINATED TUBERCULOSIS
     Dosage: 0.01 MIU, QD
     Route: 058
     Dates: start: 20130822
  4. PROLEUKIN [Suspect]
     Dosage: 0.27 MIU, UNK
     Route: 058
  5. BIKLIN [Suspect]
     Indication: DISSEMINATED TUBERCULOSIS
     Dosage: 175 MG, QD
     Route: 042
     Dates: start: 20130524
  6. AVELOX [Suspect]
     Indication: DISSEMINATED TUBERCULOSIS
     Dosage: 90 MG, QD
     Route: 042
     Dates: start: 20130524
  7. ISONIAZID [Suspect]
     Indication: DISSEMINATED TUBERCULOSIS
     Dosage: 135 MG, QD
     Route: 042
     Dates: start: 20130524
  8. MYAMBUTOL [Suspect]
     Indication: DISSEMINATED TUBERCULOSIS
     Dosage: 200 MG, QD
     Route: 048
     Dates: start: 20130524
  9. DIFLUCAN [Suspect]
     Indication: COMBINED IMMUNODEFICIENCY
     Dosage: 2 ML, QD
     Route: 048
     Dates: start: 201302
  10. ZOVIR [Suspect]
     Indication: COMBINED IMMUNODEFICIENCY
     Dosage: 2.5 ML, BID
     Route: 048
     Dates: start: 201302
  11. BACTRIM [Suspect]
     Indication: COMBINED IMMUNODEFICIENCY
     Dosage: 5 ML, (1 TIME DAILY SATURDAYS AND SUNDAYS)
     Route: 048
     Dates: start: 201302
  12. PRIVIGEN [Concomitant]
     Indication: COMBINED IMMUNODEFICIENCY
     Dosage: UNK UKN, UNK
     Dates: start: 201302

REACTIONS (7)
  - Respiratory arrest [Fatal]
  - Cardiac arrest [Fatal]
  - Drug interaction [Unknown]
  - Dyskinesia [Unknown]
  - Abdominal distension [Unknown]
  - Oedema peripheral [Unknown]
  - Vomiting [Unknown]
